FAERS Safety Report 6876623-7 (Version None)
Quarter: 2010Q3

REPORT INFORMATION
  Report Type: 
  Country: None (occurrence: None)
  Receive Date: 20100727
  Receipt Date: 20100722
  Transmission Date: 20110219
  Serious: Yes (Hospitalization)
  Sender: FDA-Public Use
  Company Number: US-GILEAD-2010-0030363

PATIENT
  Sex: Female

DRUGS (12)
  1. LETAIRIS [Suspect]
     Indication: PULMONARY ARTERIAL HYPERTENSION
     Route: 048
     Dates: start: 20080305
  2. REVATIO [Concomitant]
  3. FLOLAN [Concomitant]
  4. AMBIEN [Concomitant]
  5. ZOLOFT [Concomitant]
  6. CELLCEPT [Concomitant]
  7. DIGOXIN [Concomitant]
  8. ASCORBIC ACID [Concomitant]
  9. MULTI-VITAMIN [Concomitant]
  10. PREDNISONE [Concomitant]
  11. NEXIUM [Concomitant]
  12. LEVOXYL [Concomitant]

REACTIONS (1)
  - SYNCOPE [None]
